FAERS Safety Report 7914840-5 (Version None)
Quarter: 2011Q4

REPORT INFORMATION
  Report Type: 
  Country: None (occurrence: None)
  Receive Date: 20111115
  Receipt Date: 20111102
  Transmission Date: 20120403
  Serious: Yes (Other)
  Sender: FDA-Public Use
  Company Number: JP-ELI_LILLY_AND_COMPANY-JP201109006970

PATIENT
  Age: 67 Year
  Sex: Female

DRUGS (6)
  1. DOBUTAMINE HCL [Concomitant]
  2. ADCIRCA [Suspect]
     Dosage: 40 MG, UNK
     Route: 048
     Dates: start: 20110901, end: 20110901
  3. ADCIRCA [Suspect]
     Dosage: 20 MG, UNK
     Route: 048
     Dates: start: 20110901, end: 20110922
  4. ADCIRCA [Suspect]
     Indication: PULMONARY ARTERIAL HYPERTENSION
     Dosage: 20 MG, UNK
     Route: 048
     Dates: start: 20110913, end: 20110901
  5. BERAPROST SODIUM [Concomitant]
     Dosage: 120 UG, UNK
  6. REVATIO [Concomitant]
     Indication: PULMONARY ARTERIAL HYPERTENSION
     Dosage: UNK
     Dates: end: 20110101

REACTIONS (4)
  - DYSPNOEA EXERTIONAL [None]
  - EOSINOPHIL COUNT INCREASED [None]
  - CONDITION AGGRAVATED [None]
  - CARDIAC FAILURE [None]
